FAERS Safety Report 20893355 (Version 1)
Quarter: 2022Q2

REPORT INFORMATION
  Report Type: Report from Study
  Country: DE (occurrence: DE)
  Receive Date: 20220531
  Receipt Date: 20220531
  Transmission Date: 20220720
  Serious: Yes (Other)
  Sender: FDA-Public Use
  Company Number: DE-AMGEN-DEUSL2022090752

PATIENT
  Sex: Male

DRUGS (2)
  1. OTEZLA [Suspect]
     Active Substance: APREMILAST
     Indication: Psoriatic arthropathy
     Dosage: 20 MG - 0 - 30 MG
     Route: 065
     Dates: start: 20220511, end: 202205
  2. OTEZLA [Suspect]
     Active Substance: APREMILAST
     Indication: Psoriasis
     Dosage: 30 MG - 0 - 30 MG
     Route: 065
     Dates: start: 202205, end: 20220517

REACTIONS (7)
  - Arthropathy [Unknown]
  - Tremor [Unknown]
  - Dizziness [Unknown]
  - Head discomfort [Unknown]
  - Ocular discomfort [Unknown]
  - Palpitations [Unknown]
  - Fear of disease [Unknown]

NARRATIVE: CASE EVENT DATE: 20220501
